FAERS Safety Report 8086752-0 (Version None)
Quarter: 2012Q1

REPORT INFORMATION
  Report Type: 
  Country: None (occurrence: None)
  Receive Date: 20120128
  Receipt Date: 20110613
  Transmission Date: 20120608
  Serious: No
  Sender: FDA-Public Use
  Company Number: US-ABBOTT-11P-163-0731971-00

PATIENT
  Age: 60 Year
  Sex: Female

DRUGS (12)
  1. DYAZIDE [Concomitant]
     Indication: BLOOD PRESSURE
  2. VITAMIN D [Concomitant]
     Indication: SUPPLEMENTATION THERAPY
  3. ASPIRIN [Concomitant]
     Indication: PROPHYLAXIS
  4. LOMOTIL [Concomitant]
     Indication: DIARRHOEA
  5. ASACOL [Concomitant]
     Indication: CROHN'S DISEASE
  6. XANAX [Concomitant]
     Indication: ANXIETY
  7. TOPROL-XL [Concomitant]
     Indication: MITRAL VALVE PROLAPSE
  8. SIMVASTATIN [Concomitant]
     Indication: BLOOD CHOLESTEROL INCREASED
  9. TRICOR [Concomitant]
     Indication: BLOOD TRIGLYCERIDES
  10. FISH OIL [Concomitant]
     Indication: PRODUCT USED FOR UNKNOWN INDICATION
  11. HUMIRA [Suspect]
     Indication: CROHN'S DISEASE
     Dates: start: 20091001
  12. LANOXIN [Concomitant]
     Indication: MITRAL VALVE PROLAPSE

REACTIONS (1)
  - NASOPHARYNGITIS [None]
